FAERS Safety Report 8292331 (Version 7)
Quarter: 2013Q1

REPORT INFORMATION
  Report Type: Spontaneous
  Country: US (occurrence: US)
  Receive Date: 20111215
  Receipt Date: 20130315
  Transmission Date: 20140127
  Serious: Yes (Hospitalization, Congenital Anomaly)
  Sender: FDA-Public Use
  Company Number: US-JNJFOC-20111205145

PATIENT
  Sex: Female

DRUGS (2)
  1. TOPAMAX [Suspect]
     Indication: FOETAL EXPOSURE DURING PREGNANCY
     Route: 064
  2. QUETIAPINE [Suspect]
     Indication: FOETAL EXPOSURE DURING PREGNANCY
     Route: 064

REACTIONS (12)
  - Atrial septal defect [Unknown]
  - High arched palate [Recovered/Resolved]
  - Neonatal disorder [Unknown]
  - Fallot^s tetralogy [Recovering/Resolving]
  - Congenital anomaly [Recovering/Resolving]
  - Brachydactyly [Recovering/Resolving]
  - Patent ductus arteriosus [Unknown]
  - Congenital hydronephrosis [Unknown]
  - Foetal disorder [Unknown]
  - Single umbilical artery [Unknown]
  - Cleft palate [Unknown]
  - Emotional disorder [Unknown]
